FAERS Safety Report 6800587 (Version 12)
Quarter: 2014Q1

REPORT INFORMATION
  Report Type: Spontaneous
  Country: JP (occurrence: JP)
  Receive Date: 20081030
  Receipt Date: 20140331
  Transmission Date: 20141002
  Serious: Yes (Other)
  Sender: FDA-Public Use
  Company Number: JP-B.I. PHARMACEUTICALS,INC./RIDGEFIELD-2008-BP-16441NB

PATIENT
  Age: 32 Year
  Sex: Male
  Weight: 57 kg

DRUGS (15)
  1. MICARDIS [Suspect]
     Indication: HYPERTENSION
     Dosage: 80 MG
     Route: 048
     Dates: start: 20070608
  2. MICARDIS [Suspect]
     Dosage: 40 MG
     Route: 048
     Dates: start: 20070624, end: 20070801
  3. MICARDIS [Suspect]
     Dosage: 80 MG
     Route: 048
     Dates: start: 20070802
  4. PROGRAF [Suspect]
     Indication: LUPUS NEPHRITIS
     Dosage: 2 MG
     Route: 048
     Dates: start: 20070531
  5. PROGRAF [Suspect]
     Dosage: 2 MG
     Route: 048
     Dates: start: 20070612
  6. PROGRAF [Suspect]
     Dosage: 1.5 MG
     Route: 048
     Dates: start: 20080214
  7. PREDNISOLONE [Suspect]
     Indication: LUPUS NEPHRITIS
     Dosage: 27.5 MG
     Route: 048
     Dates: start: 20070531
  8. WARFARIN / WARFARIN POTASSIUM [Concomitant]
     Dosage: 2 MG
     Route: 048
  9. ZANTAC / RANITIDINE HYDROCHLORIDE [Concomitant]
     Indication: PROPHYLAXIS
     Dosage: 300 MG
     Route: 048
  10. ALFAROL / ALFACALCIDOL [Concomitant]
     Indication: PROPHYLAXIS
     Dosage: 0.5 MCG
     Route: 048
  11. MEVALOTIN / PRAVASTATIN SODIUM [Concomitant]
     Dosage: 10 MG
     Route: 048
     Dates: start: 20070829
  12. BONALON 35MG / ALENDRONATE SODIUM HYDRATE [Concomitant]
     Indication: PROPHYLAXIS
     Route: 048
     Dates: end: 20120321
  13. METHYCOBAL / MECOBALAMIN [Concomitant]
     Dosage: 1500 MCG
     Route: 048
     Dates: start: 20070616, end: 20080116
  14. SAWACILLIN / AMOXICILLIN HYDRATE [Concomitant]
     Indication: INFECTION PROPHYLAXIS
     Dosage: 750 MG
     Route: 048
     Dates: start: 20120717, end: 20120801
  15. SAWACILLIN / AMOXICILLIN HYDRATE [Concomitant]
     Indication: TOOTH EXTRACTION

REACTIONS (12)
  - Herpes zoster [Recovered/Resolved]
  - Periodontal disease [Recovered/Resolved]
  - Renal impairment [Not Recovered/Not Resolved]
  - Upper respiratory tract inflammation [Recovered/Resolved]
  - Oral candidiasis [Recovered/Resolved]
  - Upper respiratory tract inflammation [Recovered/Resolved]
  - White blood cell count increased [Recovered/Resolved]
  - Upper respiratory tract inflammation [Recovered/Resolved]
  - Neoplasm skin [Recovered/Resolved]
  - Bronchitis [Recovered/Resolved]
  - Upper respiratory tract inflammation [Recovered/Resolved]
  - Influenza [Recovered/Resolved]
